FAERS Safety Report 24788951 (Version 1)
Quarter: 2024Q4

REPORT INFORMATION
  Report Type: Other
  Country: CN (occurrence: CN)
  Receive Date: 20241230
  Receipt Date: 20241230
  Transmission Date: 20250115
  Serious: Yes (Other)
  Sender: B BRAUN
  Company Number: CN-B.Braun Medical Inc.-2168018

PATIENT
  Age: 3 Year
  Sex: Female

DRUGS (15)
  1. MEROPENEM [Suspect]
     Active Substance: MEROPENEM
     Indication: Pyrexia
  2. VANCOMYCIN [Suspect]
     Active Substance: VANCOMYCIN
  3. DEXAMETHASONE [Concomitant]
     Active Substance: DEXAMETHASONE
  4. RUXOLITINIB [Concomitant]
     Active Substance: RUXOLITINIB
  5. METHYLPREDNISOLONE [Concomitant]
     Active Substance: METHYLPREDNISOLONE
  6. DEXAMETHASONE [Concomitant]
     Active Substance: DEXAMETHASONE
  7. METHOTREXATE [Concomitant]
     Active Substance: METHOTREXATE
  8. CYTARABINE [Concomitant]
     Active Substance: CYTARABINE
  9. GANCICLOVIR [Concomitant]
     Active Substance: GANCICLOVIR
  10. FLUCONAZOLE [Concomitant]
     Active Substance: FLUCONAZOLE
  11. CASPOFUNGIN [Concomitant]
     Active Substance: CASPOFUNGIN
  12. SULFAMETHOXAZOLE\TRIMETHOPRIM [Suspect]
     Active Substance: SULFAMETHOXAZOLE\TRIMETHOPRIM
  13. TIGECYCLINE [Suspect]
     Active Substance: TIGECYCLINE
  14. IMIPENEM [Suspect]
     Active Substance: IMIPENEM
  15. MEROPENEM [Suspect]
     Active Substance: MEROPENEM

REACTIONS (1)
  - Drug ineffective [Unknown]
